FAERS Safety Report 7932964-3 (Version None)
Quarter: 2011Q4

REPORT INFORMATION
  Report Type: 
  Country: None (occurrence: None)
  Receive Date: 20111122
  Receipt Date: 20111117
  Transmission Date: 20120403
  Serious: Yes (Death)
  Sender: FDA-Public Use
  Company Number: PHEH2011US08137

PATIENT
  Sex: Male
  Weight: 80 kg

DRUGS (3)
  1. CYCLOSPORINE [Concomitant]
     Dosage: 150 MG, DAILY
     Route: 048
  2. EXJADE [Suspect]
     Indication: IRON OVERLOAD
     Dosage: 500 MG, DAILY
     Route: 048
     Dates: start: 20110125
  3. PREDNISONE TAB [Concomitant]
     Dosage: 10 MG, DAILY
     Route: 048

REACTIONS (8)
  - HAEMOGLOBIN DECREASED [None]
  - BLOOD PHOSPHORUS DECREASED [None]
  - HEMIPARESIS [None]
  - CEREBROVASCULAR ACCIDENT [None]
  - MYDRIASIS [None]
  - ACUTE MYELOID LEUKAEMIA [None]
  - DYSARTHRIA [None]
  - WHITE BLOOD CELL COUNT DECREASED [None]
